FAERS Safety Report 8756301 (Version 2)
Quarter: 2012Q4

REPORT INFORMATION
  Report Type: Spontaneous
  Country: JP (occurrence: None)
  Receive Date: 20120816
  Receipt Date: 20120823
  Transmission Date: 20130627
  Serious: Yes (Other)
  Sender: FDA-Public Use
  Company Number: 2012MA009750

PATIENT
  Age: 80 Year
  Sex: Female

DRUGS (6)
  1. DONEPEZIL HYDROCHLORIDE [Suspect]
     Indication: ALZHEIMER^S DISEASE
  2. BENIDIPINE [Concomitant]
  3. ATORVASTATIN [Concomitant]
  4. AMLODIPINE [Concomitant]
  5. ALFACALCIDOL [Concomitant]
  6. RISEDRONATE SODIUM [Concomitant]

REACTIONS (2)
  - Drug interaction [None]
  - Electrocardiogram QT prolonged [None]
